FAERS Safety Report 16671736 (Version 2)
Quarter: 2019Q3

REPORT INFORMATION
  Report Type: Spontaneous
  Country: HU (occurrence: HU)
  Receive Date: 20190806
  Receipt Date: 20190810
  Transmission Date: 20191004
  Serious: Yes (Other)
  Sender: FDA-Public Use
  Company Number: HU-CELLTRION INC.-2019HU022430

PATIENT

DRUGS (2)
  1. CICLOSPORIN [Suspect]
     Active Substance: CYCLOSPORINE
     Indication: NEPHROTIC SYNDROME
     Dosage: UNK
     Route: 065
  2. RITUXIMAB (UNKNOWN) [Suspect]
     Active Substance: RITUXIMAB
     Indication: NEPHROTIC SYNDROME
     Dosage: UNK
     Route: 065

REACTIONS (7)
  - Nephrotic syndrome [Recovered/Resolved]
  - Disease recurrence [Recovered/Resolved]
  - Product use in unapproved indication [Unknown]
  - Renal vein compression [Unknown]
  - Proteinuria [Unknown]
  - Haematuria [Unknown]
  - Product use issue [Unknown]
